FAERS Safety Report 6616861-1 (Version None)
Quarter: 2010Q1

REPORT INFORMATION
  Report Type: 
  Country: None (occurrence: None)
  Receive Date: 20100301
  Receipt Date: 20100212
  Transmission Date: 20100710
  Serious: Yes (Disabling)
  Sender: FDA-Public Use
  Company Number: DSA_42629_2010

PATIENT
  Sex: Female

DRUGS (3)
  1. VASOTEC [Suspect]
     Indication: HYPERTENSION
     Dosage: (DF ORAL)
     Route: 048
     Dates: start: 20000414
  2. HYDRODIURIL [Suspect]
     Indication: HYPERTENSION
     Dosage: (DF ORAL)
     Route: 048
  3. METOPROLOL TARTRATE [Suspect]
     Indication: HYPERTENSION
     Dosage: (DF ORAL)
     Route: 048

REACTIONS (2)
  - BLOOD PRESSURE INADEQUATELY CONTROLLED [None]
  - UNEMPLOYMENT [None]
